FAERS Safety Report 10154544 (Version 1)
Quarter: 2014Q2

REPORT INFORMATION
  Report Type: Spontaneous
  Country: US (occurrence: None)
  Receive Date: 20140505
  Receipt Date: 20140505
  Transmission Date: 20141212
  Serious: Yes (Hospitalization)
  Sender: FDA-Public Use
  Company Number: None

PATIENT
  Age: 36 Year
  Sex: Female

DRUGS (11)
  1. RITUXIMAB [Suspect]
     Indication: RHEUMATOID ARTHRITIS
     Route: 042
     Dates: start: 20120130, end: 20120130
  2. ALPRAZOLAM [Concomitant]
  3. AZATHIOPRINE [Concomitant]
  4. CALCIUM CARBONATE [Concomitant]
  5. CYCLOBENZAPRINE [Concomitant]
  6. HYDROXYCHLOROQUINE [Concomitant]
  7. HYDROCODONE [Concomitant]
  8. OMEPRAZOLE [Concomitant]
  9. LACTOBACILLUS GRANULES [Concomitant]
  10. TRAZODONE [Concomitant]
  11. ZOLPIDEM [Concomitant]

REACTIONS (1)
  - Vision blurred [None]
